FAERS Safety Report 10407405 (Version 1)
Quarter: 2014Q3

REPORT INFORMATION
  Report Type: Spontaneous
  Country: US (occurrence: US)
  Receive Date: 20140825
  Receipt Date: 20140825
  Transmission Date: 20150326
  Serious: No
  Sender: FDA-Public Use
  Company Number: US-GILEAD-2014-0112934

PATIENT

DRUGS (2)
  1. SOVALDI [Suspect]
     Active Substance: SOFOSBUVIR
     Indication: HEPATITIS C
     Route: 065
  2. RIBAVIRIN. [Concomitant]
     Active Substance: RIBAVIRIN

REACTIONS (10)
  - Deep vein thrombosis [Unknown]
  - Myalgia [Unknown]
  - Insomnia [Unknown]
  - Activities of daily living impaired [Unknown]
  - Pain [Unknown]
  - Confusional state [Unknown]
  - Infection [Unknown]
  - Localised infection [Unknown]
  - Malaise [Unknown]
  - Asthenia [Unknown]
